FAERS Safety Report 8022302-2 (Version None)
Quarter: 2012Q1

REPORT INFORMATION
  Report Type: 
  Country: None (occurrence: None)
  Receive Date: 20120104
  Receipt Date: 20111229
  Transmission Date: 20120608
  Serious: Yes (Hospitalization, Other)
  Sender: FDA-Public Use
  Company Number: PHHY2011NL113460

PATIENT
  Sex: Female

DRUGS (1)
  1. ZOMETA [Suspect]
     Indication: BREAST CANCER METASTATIC
     Dosage: 4 MG/5 ML, 1 X PER 28 DAYS
     Route: 042
     Dates: start: 20111114

REACTIONS (3)
  - BLOOD POTASSIUM ABNORMAL [None]
  - SIALOADENITIS [None]
  - MALAISE [None]
